FAERS Safety Report 5139754-8 (Version None)
Quarter: 2006Q4

REPORT INFORMATION
  Report Type: 
  Country: None (occurrence: None)
  Receive Date: 20061023
  Receipt Date: 20061012
  Transmission Date: 20070319
  Serious: Yes (Hospitalization)
  Sender: FDA-Public Use
  Company Number: HQWYE009212OCT06

PATIENT
  Age: 53 Year
  Sex: Male

DRUGS (3)
  1. PANTORC (PANTOPRAZOLE, TABLET, DELAYED RELEASE) [Suspect]
     Indication: DYSPEPSIA
     Dosage: 20 MG ORAL
     Route: 048
     Dates: start: 20060715, end: 20061004
  2. LASIX [Concomitant]
  3. TENORMIN [Concomitant]

REACTIONS (1)
  - GYNAECOMASTIA [None]
